FAERS Safety Report 6829629-8 (Version None)
Quarter: 2010Q3

REPORT INFORMATION
  Report Type: 
  Country: None (occurrence: None)
  Receive Date: 20100709
  Receipt Date: 20070419
  Transmission Date: 20110219
  Serious: No
  Sender: FDA-Public Use
  Company Number: US-PFIZER INC-2007012838

PATIENT
  Sex: Female
  Weight: 79.83 kg

DRUGS (10)
  1. CHANTIX [Suspect]
     Indication: SMOKING CESSATION THERAPY
     Route: 048
     Dates: start: 20070126
  2. ASPIRIN [Concomitant]
  3. ENALAPRIL [Concomitant]
  4. METOPROLOL [Concomitant]
  5. LOVASTATIN [Concomitant]
  6. ATIVAN [Concomitant]
  7. TRAZODONE [Concomitant]
  8. ZOLOFT [Concomitant]
  9. NITROGLYCERIN [Concomitant]
  10. PLAVIX [Concomitant]

REACTIONS (3)
  - EPISTAXIS [None]
  - NASAL DISCOMFORT [None]
  - NASAL DRYNESS [None]
